FAERS Safety Report 11767416 (Version 2)
Quarter: 2016Q1

REPORT INFORMATION
  Report Type: Spontaneous
  Country: BR (occurrence: BR)
  Receive Date: 20151123
  Receipt Date: 20160222
  Transmission Date: 20160525
  Serious: Yes (Hospitalization, Other)
  Sender: FDA-Public Use
  Company Number: BR-JNJFOC-20151120495

PATIENT
  Sex: Female

DRUGS (1)
  1. SIMPONI [Suspect]
     Active Substance: GOLIMUMAB
     Indication: RHEUMATOID ARTHRITIS
     Route: 058
     Dates: start: 20141224, end: 20150910

REACTIONS (6)
  - Haemorrhoids [Unknown]
  - Procedural pain [Unknown]
  - Asthenia [Unknown]
  - Post procedural complication [Unknown]
  - Inflammation [Unknown]
  - Peripheral swelling [Unknown]
